FAERS Safety Report 21631394 (Version 1)
Quarter: 2022Q4

REPORT INFORMATION
  Report Type: Spontaneous
  Country: GH (occurrence: GH)
  Receive Date: 20221123
  Receipt Date: 20221123
  Transmission Date: 20230112
  Serious: Yes (Other)
  Sender: FDA-Public Use
  Company Number: GH-SUN PHARMACEUTICAL INDUSTRIES LTD-2022RR-364929

PATIENT
  Age: 24 Year
  Sex: Female

DRUGS (5)
  1. ACETAMINOPHEN [Suspect]
     Active Substance: ACETAMINOPHEN
     Indication: Severe acute respiratory syndrome
     Dosage: 1 GRAM
     Route: 048
  2. CEFTRIAXONE [Suspect]
     Active Substance: CEFTRIAXONE
     Indication: Severe acute respiratory syndrome
     Dosage: 2 GRAM, DAILY
     Route: 040
  3. AZITHROMYCIN [Suspect]
     Active Substance: AZITHROMYCIN
     Indication: Severe acute respiratory syndrome
     Dosage: 500 MILLIGRAM, DAILY
     Route: 048
  4. AZITHROMYCIN [Suspect]
     Active Substance: AZITHROMYCIN
     Dosage: 250 MILLIGRAM, DAILY
     Route: 048
  5. DEXAMETHASONE [Suspect]
     Active Substance: DEXAMETHASONE
     Indication: Severe acute respiratory syndrome
     Dosage: 6 MILLIGRAM, DAILY
     Route: 040

REACTIONS (3)
  - Off label use [Recovering/Resolving]
  - Exposure during pregnancy [Recovering/Resolving]
  - Premature baby [Recovering/Resolving]
